FAERS Safety Report 6250894-2 (Version None)
Quarter: 2009Q2

REPORT INFORMATION
  Report Type: 
  Country: None (occurrence: None)
  Receive Date: 20090630
  Receipt Date: 20090513
  Transmission Date: 20091009
  Serious: No
  Sender: FDA-Public Use
  Company Number: US-BAUSCH-2009BL002360

PATIENT
  Age: 58 Year
  Sex: Female

DRUGS (3)
  1. ALAWAY [Suspect]
     Indication: EYE PRURITUS
     Route: 047
     Dates: start: 20090509, end: 20090510
  2. MELOXICAM [Concomitant]
  3. NATURAL TEARS [Concomitant]

REACTIONS (2)
  - EXPIRED DRUG ADMINISTERED [None]
  - INSTILLATION SITE PAIN [None]
